FAERS Safety Report 22889547 (Version 2)
Quarter: 2025Q3

REPORT INFORMATION
  Report Type: Spontaneous
  Country: US (occurrence: US)
  Receive Date: 20230831
  Receipt Date: 20250910
  Transmission Date: 20251021
  Serious: Yes (Hospitalization, Other)
  Sender: CHATTEM
  Company Number: US-OPELLA-2023OHG003965

PATIENT
  Age: 49 Year
  Sex: Male
  Weight: 100.7 kg

DRUGS (1)
  1. GOLD BOND ORIGINAL STRENGTH [Suspect]
     Active Substance: MENTHOL
     Indication: Product used for unknown indication
     Route: 065

REACTIONS (2)
  - Pleural mesothelioma malignant [Unknown]
  - Pleural effusion [Unknown]
